FAERS Safety Report 10082276 (Version 1)
Quarter: 2014Q2

REPORT INFORMATION
  Report Type: Spontaneous
  Country: NO (occurrence: NO)
  Receive Date: 20140416
  Receipt Date: 20140416
  Transmission Date: 20141212
  Serious: Yes (Life-Threatening, Hospitalization)
  Sender: FDA-Public Use
  Company Number: PHHY2014NO044620

PATIENT
  Age: 50 Year
  Sex: Female

DRUGS (3)
  1. VOLTAROL [Suspect]
     Indication: INFLUENZA LIKE ILLNESS
     Dosage: 1 DF, FOR THE FIRST TIME
     Route: 048
     Dates: start: 20140405, end: 20140405
  2. VOLTAROL [Suspect]
     Indication: ARTHRALGIA
  3. METOPROLOL MYLAN [Concomitant]
     Indication: MIGRAINE PROPHYLAXIS
     Dosage: 100 MG, QD USED FOR 30 YEARS

REACTIONS (2)
  - Shock [Recovered/Resolved with Sequelae]
  - Diarrhoea [Recovered/Resolved with Sequelae]
